FAERS Safety Report 5005706-1 (Version None)
Quarter: 2006Q2

REPORT INFORMATION
  Report Type: 
  Country: None (occurrence: None)
  Receive Date: 20060515
  Receipt Date: 20060503
  Transmission Date: 20061013
  Serious: Yes (Hospitalization)
  Sender: FDA-Public Use
  Company Number: 2006058641

PATIENT
  Age: 53 Year
  Sex: Female

DRUGS (3)
  1. AMLODIPINE [Suspect]
     Indication: HYPERTENSION
     Dosage: 10 MG (10 MG, DAILY), ORAL
     Route: 048
     Dates: start: 20060401, end: 20060406
  2. PROPRANOLOL [Suspect]
     Indication: HYPERTENSION
     Dosage: 160 MG (160 MG, DAILY), ORAL
     Route: 048
     Dates: end: 20060406
  3. ISOBAR (METHYCLOTHIAZIDE, TRIAMTERENE) [Concomitant]

REACTIONS (10)
  - ACUTE PULMONARY OEDEMA [None]
  - ANGINA PECTORIS [None]
  - CAPILLARY PERMEABILITY INCREASED [None]
  - CONDITION AGGRAVATED [None]
  - EXPOSURE TO TOXIC AGENT [None]
  - EYELID OEDEMA [None]
  - HYPERTENSION [None]
  - MITRAL VALVE INCOMPETENCE [None]
  - OEDEMA PERIPHERAL [None]
  - TACHYCARDIA [None]
